FAERS Safety Report 16869308 (Version 1)
Quarter: 2019Q3

REPORT INFORMATION
  Report Type: Spontaneous
  Country: US (occurrence: US)
  Receive Date: 20190930
  Receipt Date: 20190930
  Transmission Date: 20191005
  Serious: No
  Sender: FDA-Public Use
  Company Number: US-EMD SERONO-9118347

PATIENT
  Age: 66 Year
  Sex: Male

DRUGS (1)
  1. SEROSTIM [Suspect]
     Active Substance: SOMATROPIN
     Indication: HIV INFECTION
     Route: 058
     Dates: start: 20190111

REACTIONS (3)
  - Temporomandibular joint syndrome [Unknown]
  - Joint stiffness [Unknown]
  - Off label use [Unknown]

NARRATIVE: CASE EVENT DATE: 2019
